FAERS Safety Report 4381818-0 (Version None)
Quarter: 2004Q2

REPORT INFORMATION
  Report Type: 
  Country: None (occurrence: None)
  Receive Date: 20040603
  Receipt Date: 20030903
  Transmission Date: 20050107
  Serious: Yes (Hospitalization)
  Sender: FDA-Public Use
  Company Number: 200316001US

PATIENT
  Age: 79 Year
  Sex: Male
  Weight: 71 kg

DRUGS (3)
  1. LOVENOX [Suspect]
     Indication: ATRIAL FIBRILLATION
     Dosage: 70 (1-2 DOSES) MG  SC
     Route: 058
     Dates: start: 20030509, end: 20030509
  2. LOVENOX [Suspect]
     Indication: ATRIAL FIBRILLATION
     Dosage: 70 MG BID SC
     Route: 058
     Dates: start: 20030605, end: 20030611
  3. WARFARIN SODIUM [Concomitant]

REACTIONS (2)
  - PULMONARY EMBOLISM [None]
  - THROMBOCYTOPENIA [None]
